FAERS Safety Report 13700382 (Version 2)
Quarter: 2017Q4

REPORT INFORMATION
  Report Type: Report from Study
  Country: None (occurrence: US)
  Receive Date: 20170629
  Receipt Date: 20171024
  Transmission Date: 20180320
  Serious: Yes (Hospitalization, Other)
  Sender: FDA-Public Use
  Company Number: US-ABBVIE-16K-163-1585990-00

PATIENT
  Age: 58 Year
  Sex: Female

DRUGS (3)
  1. HUMIRA [Suspect]
     Active Substance: ADALIMUMAB
     Indication: CROHN^S DISEASE
     Route: 058
  2. CALCIUM CARBONATE/VITAMIN D3 [Concomitant]
     Active Substance: CALCIUM CARBONATE\CHOLECALCIFEROL
     Indication: PRODUCT USED FOR UNKNOWN INDICATION
     Route: 048
  3. FISH OIL [Concomitant]
     Active Substance: FISH OIL
     Indication: PRODUCT USED FOR UNKNOWN INDICATION
     Route: 048

REACTIONS (21)
  - Enterocolitis [Unknown]
  - Small intestinal obstruction [Unknown]
  - Dry skin [Unknown]
  - Postoperative hernia [Unknown]
  - Abdominal lymphadenopathy [Unknown]
  - Renal cyst [Unknown]
  - Aspartate aminotransferase decreased [Unknown]
  - Gastrointestinal wall thickening [Unknown]
  - Aortic calcification [Unknown]
  - Adrenomegaly [Unknown]
  - Monocyte count increased [Unknown]
  - Diarrhoea [Not Recovered/Not Resolved]
  - Intestinal mucosal hypertrophy [Unknown]
  - Intervertebral disc degeneration [Unknown]
  - Gastrointestinal infection [Unknown]
  - Gastric dilatation [Unknown]
  - Nasopharyngitis [Unknown]
  - Skin warm [Unknown]
  - Adrenal mass [Unknown]
  - Abdominal pain upper [Unknown]
  - Blood potassium decreased [Unknown]

NARRATIVE: CASE EVENT DATE: 201501
